FAERS Safety Report 5225930-2 (Version None)
Quarter: 2007Q1

REPORT INFORMATION
  Report Type: 
  Country: None (occurrence: None)
  Receive Date: 20070201
  Receipt Date: 20070122
  Transmission Date: 20070707
  Serious: Yes (Hospitalization)
  Sender: FDA-Public Use
  Company Number: PHEH2007US00597

PATIENT
  Age: 83 Year
  Sex: Female
  Weight: 45.351 kg

DRUGS (6)
  1. FEMARA [Suspect]
     Indication: BREAST CANCER
     Dosage: 2.5 MG, QD
     Route: 048
     Dates: start: 20060826
  2. FEMARA [Suspect]
     Dosage: 2.5 MG, QD
     Route: 048
     Dates: start: 20070102
  3. TOPROL-XL [Concomitant]
  4. LISINOPRIL [Concomitant]
  5. NORVASC [Concomitant]
  6. TEMODAR [Concomitant]
     Indication: METASTATIC MALIGNANT MELANOMA
     Dosage: 100MG PO QD  FOR 42 DAYS
     Dates: start: 20060901

REACTIONS (6)
  - ABDOMINAL PAIN [None]
  - CONSTIPATION [None]
  - DECREASED APPETITE [None]
  - HEADACHE [None]
  - INTESTINAL OBSTRUCTION [None]
  - STOMACH DISCOMFORT [None]
